FAERS Safety Report 5214397-6 (Version None)
Quarter: 2007Q1

REPORT INFORMATION
  Report Type: 
  Country: None (occurrence: None)
  Receive Date: 20070122
  Receipt Date: 20070118
  Transmission Date: 20070707
  Serious: Yes (Hospitalization)
  Sender: FDA-Public Use
  Company Number: ES-BRISTOL-MYERS SQUIBB COMPANY-13647128

PATIENT
  Age: 65 Year
  Sex: Male
  Weight: 95 kg

DRUGS (6)
  1. CISPLATIN [Suspect]
     Indication: NON-SMALL CELL LUNG CANCER
     Route: 042
     Dates: start: 20061228, end: 20061228
  2. GEMCITABINE [Suspect]
     Indication: NON-SMALL CELL LUNG CANCER
     Route: 042
     Dates: start: 20061228, end: 20061228
  3. DIANBEN [Concomitant]
     Route: 048
     Dates: start: 20020101
  4. SERETIDE [Concomitant]
     Route: 055
     Dates: start: 20041201
  5. SPIRIVA [Concomitant]
     Route: 055
     Dates: start: 20041201
  6. COROPRES [Concomitant]
     Route: 048
     Dates: start: 20060801

REACTIONS (2)
  - ANXIETY [None]
  - DYSPNOEA [None]
